FAERS Safety Report 22645596 (Version 3)
Quarter: 2025Q1

REPORT INFORMATION
  Report Type: Spontaneous
  Country: IT (occurrence: IT)
  Receive Date: 20230627
  Receipt Date: 20250310
  Transmission Date: 20250409
  Serious: Yes (Death)
  Sender: AMGEN
  Company Number: IT-ROCHE-3307685

PATIENT
  Age: 77 Year
  Sex: Male
  Weight: 45 kg

DRUGS (21)
  1. BEVACIZUMAB [Suspect]
     Active Substance: BEVACIZUMAB
     Indication: Hepatocellular carcinoma
     Dosage: 750 MILLIGRAM, Q3WK, (TIME OF LATEST SUSPECT DRUG ADMINISTRATION: 17-FEB-2023)
     Route: 040
     Dates: start: 20230127
  2. ATEZOLIZUMAB [Suspect]
     Active Substance: ATEZOLIZUMAB
     Indication: Hepatocellular carcinoma
     Dosage: START AND END  DATE OF MOST RECENT DOSE OF STUDY DRUG PRIOR TO AE/SAE : 17/FEB/2023
     Route: 040
     Dates: start: 20230127
  3. PANTOPRAZOLE [Concomitant]
     Active Substance: PANTOPRAZOLE
     Dosage: UNK, BID
     Dates: start: 20221220
  4. FINASTERIDE [Concomitant]
     Active Substance: FINASTERIDE
     Dosage: 5 MILLIGRAM, QD
  5. FUROSEMIDE [Concomitant]
     Active Substance: FUROSEMIDE
     Dosage: UNK, QD
     Dates: start: 20221220, end: 20230330
  6. FUROSEMIDE [Concomitant]
     Active Substance: FUROSEMIDE
     Dosage: UNK, BID
     Dates: start: 20230330
  7. LINEZOLID [Concomitant]
     Active Substance: LINEZOLID
     Dosage: UNK, BID
     Dates: start: 20230511, end: 20230521
  8. ATENOLOL [Concomitant]
     Active Substance: ATENOLOL
  9. ATENOLOL [Concomitant]
     Active Substance: ATENOLOL
  10. HEPARIN [Concomitant]
     Active Substance: HEPARIN SODIUM
     Dosage: UNK UNK, QD
  11. CLOTRIMAZOLE [Concomitant]
     Active Substance: CLOTRIMAZOLE
     Dosage: UNK, QD
     Dates: start: 20230420, end: 20230504
  12. NIFEDIPINE [Concomitant]
     Active Substance: NIFEDIPINE
     Dosage: UNK, QD
  13. POTASSIUM CHLORIDE [Concomitant]
     Active Substance: POTASSIUM CHLORIDE
     Dosage: UNK, QD
     Dates: start: 20230420
  14. ACETAMINOPHEN [Concomitant]
     Active Substance: ACETAMINOPHEN
     Dates: end: 20230518
  15. ACETAMINOPHEN [Concomitant]
     Active Substance: ACETAMINOPHEN
     Dates: end: 20230518
  16. TAMSULOSIN [Concomitant]
     Active Substance: TAMSULOSIN
     Dosage: UNK UNK, QD
  17. TAPENTADOL [Concomitant]
     Active Substance: TAPENTADOL
     Dosage: UNK, BID
     Dates: start: 20230124
  18. IBUPROFEN [Concomitant]
     Active Substance: IBUPROFEN
     Dates: start: 20230518, end: 20230605
  19. LACTULOSE [Concomitant]
     Active Substance: LACTULOSE
  20. SORAFENIB [Concomitant]
     Active Substance: SORAFENIB
     Dates: start: 20230504
  21. SORAFENIB [Concomitant]
     Active Substance: SORAFENIB
     Dates: start: 20230522, end: 20230529

REACTIONS (5)
  - Disease progression [Fatal]
  - Off label use [Unknown]
  - Oedema [Recovered/Resolved]
  - Erythema [Recovered/Resolved]
  - Pruritus [Recovered/Resolved]

NARRATIVE: CASE EVENT DATE: 20230127
